FAERS Safety Report 8469842-X (Version None)
Quarter: 2012Q2

REPORT INFORMATION
  Report Type: 
  Country: None (occurrence: None)
  Receive Date: 20120626
  Receipt Date: 20120619
  Transmission Date: 20120825
  Serious: Yes (Hospitalization)
  Sender: FDA-Public Use
  Company Number: US-B.I. PHARMACEUTICALS,INC./RIDGEFIELD-2012-BP-14040BP

PATIENT
  Sex: Male
  Weight: 70 kg

DRUGS (14)
  1. ASPIRIN [Concomitant]
     Indication: ANTICOAGULANT THERAPY
     Dosage: 325 MG
     Route: 048
  2. TIMOLOL EYE DROP [Concomitant]
     Indication: GLAUCOMA
  3. COREG [Concomitant]
     Indication: CARDIAC DISORDER
     Dosage: 12.5 MG
     Route: 048
  4. AMLODIPINE BESYLETE [Concomitant]
     Indication: CARDIAC DISORDER
     Dosage: 2.5 MG
     Route: 048
  5. ZEMPLAR [Concomitant]
     Indication: RENAL DISORDER
     Route: 048
  6. OMPERZOLE [Concomitant]
     Indication: GASTRIC DISORDER
     Dosage: 20 MG
     Route: 048
  7. ISOSORBIDE MNER [Concomitant]
     Indication: CARDIAC DISORDER
     Dosage: 30 MG
     Route: 048
  8. SPIRIVA HH [Concomitant]
     Indication: CHRONIC OBSTRUCTIVE PULMONARY DISEASE
     Dosage: 18 MCG
     Route: 055
  9. PRADAXA [Suspect]
     Indication: ATRIAL FIBRILLATION
     Dosage: 150 MG
     Route: 048
     Dates: start: 20110426, end: 20120601
  10. LASIX [Concomitant]
     Indication: PROPHYLAXIS
     Dosage: 20 MG
     Route: 048
  11. MULTI-VITAMIN [Concomitant]
     Route: 048
  12. DIOVAN [Concomitant]
     Indication: CARDIAC DISORDER
     Dosage: 320 MG
     Route: 048
  13. VIT C [Concomitant]
     Dosage: 500 MG
     Route: 048
  14. VIT D3 [Concomitant]
     Dosage: 1000 U
     Route: 048

REACTIONS (3)
  - CARDIAC FAILURE [None]
  - HAEMORRHAGE [None]
  - PLATELET COUNT DECREASED [None]
